FAERS Safety Report 9887841 (Version 1)
Quarter: 2014Q1

REPORT INFORMATION
  Report Type: Report from Study
  Country: NL (occurrence: NL)
  Receive Date: 20140211
  Receipt Date: 20140211
  Transmission Date: 20141002
  Serious: Yes (Life-Threatening, Hospitalization)
  Sender: FDA-Public Use
  Company Number: PHHY2014NL015910

PATIENT
  Age: 65 Year
  Sex: Male
  Weight: 90 kg

DRUGS (11)
  1. SOM230 [Suspect]
     Indication: PITUITARY-DEPENDENT CUSHING^S SYNDROME
     Dosage: 0.9 MG, BID
     Route: 058
     Dates: start: 20130102
  2. ANDROGEL [Concomitant]
     Dosage: 50 MG, QD
  3. EUTHYROX [Concomitant]
     Dosage: 100 UG, QD
  4. AMLODIPINE [Concomitant]
     Dosage: 5 MG, QD
  5. SPIRONOLACTON [Concomitant]
     Dosage: 25 MG, QD
  6. ESOMEPRAZOLE [Concomitant]
     Dosage: 40 MG, QD
  7. CALCIUM D3 [Concomitant]
     Dosage: 1 DF, QD
  8. NOVORAPID [Concomitant]
  9. LANTUS [Concomitant]
     Dosage: 38 IU, UNK
  10. ACENOCOUMAROL [Concomitant]
  11. METOPROLOL [Concomitant]
     Dosage: 50 MG, QD

REACTIONS (1)
  - Meningitis haemophilus [Recovered/Resolved]
